FAERS Safety Report 7347478-1 (Version None)
Quarter: 2011Q1

REPORT INFORMATION
  Report Type: 
  Country: None (occurrence: None)
  Receive Date: 20110311
  Receipt Date: 20100817
  Transmission Date: 20110831
  Serious: Yes (Other)
  Sender: FDA-Public Use
  Company Number: US-BAYER-201013270NA

PATIENT
  Sex: Female
  Weight: 84.091 kg

DRUGS (7)
  1. TRINESSA [Concomitant]
     Dosage: UNK
     Dates: start: 20050525
  2. YASMIN [Suspect]
     Indication: OVARIAN CYST
     Dosage: AS USED DOSE: UNK
     Route: 048
     Dates: start: 20080101
  3. YAZ [Suspect]
     Indication: PRODUCT USED FOR UNKNOWN INDICATION
     Dosage: UNK
     Dates: start: 20080501, end: 20090101
  4. ULTRAM [Concomitant]
  5. AXID [Concomitant]
  6. YASMIN [Suspect]
     Indication: MENSTRUAL CYCLE MANAGEMENT
     Dosage: AS USED DOSE: UNK
     Route: 048
     Dates: start: 20030101, end: 20080101
  7. PROTONIX [Concomitant]

REACTIONS (12)
  - NEPHROLITHIASIS [None]
  - ABDOMINAL DISTENSION [None]
  - ABDOMINAL PAIN [None]
  - GASTROOESOPHAGEAL REFLUX DISEASE [None]
  - BENIGN NEOPLASM OF ADRENAL GLAND [None]
  - NAUSEA [None]
  - ABDOMINAL TENDERNESS [None]
  - DYSPEPSIA [None]
  - CHOLELITHIASIS [None]
  - TACHYCARDIA [None]
  - PERITONITIS [None]
  - CHOLECYSTITIS CHRONIC [None]
